FAERS Safety Report 18787016 (Version 1)
Quarter: 2021Q1

REPORT INFORMATION
  Report Type: Spontaneous
  Country: US (occurrence: US)
  Receive Date: 20210125
  Receipt Date: 20210125
  Transmission Date: 20210419
  Serious: No
  Sender: FDA-Public Use
  Company Number: None

PATIENT
  Age: 62 Year
  Sex: Female

DRUGS (1)
  1. PROLIA [Suspect]
     Active Substance: DENOSUMAB
     Dosage: FREQUENCY: OTHER
     Route: 058
     Dates: start: 202007

REACTIONS (2)
  - Refusal of treatment by patient [None]
  - Adverse drug reaction [None]

NARRATIVE: CASE EVENT DATE: 20200721
